FAERS Safety Report 6382693-5 (Version None)
Quarter: 2009Q3

REPORT INFORMATION
  Report Type: 
  Country: None (occurrence: None)
  Receive Date: 20090928
  Receipt Date: 20090928
  Transmission Date: 20100115
  Serious: Yes (Disabling)
  Sender: FDA-Public Use
  Company Number: None

PATIENT
  Age: 35 Year
  Sex: Male
  Weight: 43 kg

DRUGS (1)
  1. LEXAPRO [Suspect]
     Indication: OBSESSIVE-COMPULSIVE DISORDER
     Dosage: 10MG DAILY
     Dates: start: 20071001, end: 20081007

REACTIONS (4)
  - ERECTILE DYSFUNCTION [None]
  - LOSS OF LIBIDO [None]
  - MALE SEXUAL DYSFUNCTION [None]
  - ORGANIC ERECTILE DYSFUNCTION [None]
